FAERS Safety Report 5522710-5 (Version None)
Quarter: 2007Q4

REPORT INFORMATION
  Report Type: 
  Country: None (occurrence: None)
  Receive Date: 20071120
  Receipt Date: 20071023
  Transmission Date: 20080405
  Serious: Yes (Other)
  Sender: FDA-Public Use
  Company Number: JP-PFIZER INC-2007088017

PATIENT
  Age: 60 Year
  Sex: Female

DRUGS (5)
  1. MIGLITOL TABLET [Suspect]
     Indication: DIABETES MELLITUS
     Dosage: DAILY DOSE:50MG
     Route: 048
     Dates: start: 20070627, end: 20070627
  2. AMLODIN [Concomitant]
     Route: 048
  3. VALSARTAN [Concomitant]
     Indication: HYPERTENSION
     Route: 048
  4. DOXAZOSIN MESYLATE [Concomitant]
     Indication: HYPERTENSION
     Route: 048
  5. OMEPRAL [Concomitant]
     Route: 048

REACTIONS (3)
  - DIARRHOEA [None]
  - INCONTINENCE [None]
  - LOSS OF CONSCIOUSNESS [None]
